FAERS Safety Report 17180877 (Version 7)
Quarter: 2021Q1

REPORT INFORMATION
  Report Type: Report from Study
  Country: JP (occurrence: JP)
  Receive Date: 20191219
  Receipt Date: 20210311
  Transmission Date: 20210419
  Serious: Yes (Hospitalization)
  Sender: FDA-Public Use
  Company Number: JP-ALNYLAM PHARMACEUTICALS, INC.-ALN-2019-000826

PATIENT

DRUGS (32)
  1. MOSAPRIDE CITRATE [Concomitant]
     Active Substance: MOSAPRIDE CITRATE
     Indication: HEREDITARY NEUROPATHIC AMYLOIDOSIS
     Dosage: 1 DOSAGE FORM, TID
     Route: 048
  2. LORAZEPAM TOWA [Concomitant]
     Indication: HEREDITARY NEUROPATHIC AMYLOIDOSIS
     Dosage: 1 DOSAGE FORM, TID
     Route: 048
  3. GASTER [Concomitant]
     Active Substance: FAMOTIDINE
     Indication: PROPHYLAXIS
     Dosage: 20 MILLIGRAM, SINGLE
     Route: 065
     Dates: start: 20190913
  4. MIDODRINE HYDROCHLORIDE. [Concomitant]
     Active Substance: MIDODRINE HYDROCHLORIDE
     Indication: HEREDITARY NEUROPATHIC AMYLOIDOSIS
     Dosage: 1 DOSAGE FORM, BID
     Route: 048
  5. AMITIZA [Concomitant]
     Active Substance: LUBIPROSTONE
     Indication: CONSTIPATION
  6. PRIMPERAN [Concomitant]
     Active Substance: METOCLOPRAMIDE HYDROCHLORIDE
     Indication: NAUSEA
     Dosage: 5 MILLIGRAM, TID
     Route: 065
  7. ONPATTRO [Suspect]
     Active Substance: PATISIRAN SODIUM
     Indication: HEREDITARY NEUROPATHIC AMYLOIDOSIS
     Dosage: 16.5 MILLIGRAM
     Route: 041
     Dates: start: 20190913, end: 20191115
  8. BELSOMRA [Concomitant]
     Active Substance: SUVOREXANT
     Indication: SLEEP DISORDER
  9. MIDODRINE HYDROCHLORIDE. [Concomitant]
     Active Substance: MIDODRINE HYDROCHLORIDE
     Indication: HYPOTENSION
  10. LOFLAZEPATE D^ETHYLE [Concomitant]
     Indication: HEREDITARY NEUROPATHIC AMYLOIDOSIS
     Dosage: 2 DOSAGE FORM, QD
     Route: 048
  11. SODIUM PICOSULFATE [Concomitant]
     Active Substance: SODIUM PICOSULFATE
     Indication: HEREDITARY NEUROPATHIC AMYLOIDOSIS
     Dosage: 25 DROP, SINGLE
     Route: 048
  12. NAUZELIN [Concomitant]
     Active Substance: DOMPERIDONE
     Indication: VOMITING
  13. VYNDAQEL [Concomitant]
     Active Substance: TAFAMIDIS MEGLUMINE
     Indication: HEREDITARY NEUROPATHIC AMYLOIDOSIS
     Dosage: UNK
     Route: 065
     Dates: start: 201408, end: 201910
  14. POLARAMINE [Concomitant]
     Active Substance: DEXCHLORPHENIRAMINE MALEATE
     Indication: PROPHYLAXIS
     Dosage: 5 MILLIGRAM, SINGLE
     Route: 065
     Dates: start: 20190913
  15. PANVITAN [Concomitant]
     Active Substance: VITAMINS
     Indication: PREMEDICATION
     Dosage: 1 GRAM, QD
     Route: 048
     Dates: start: 20190913
  16. MAGNESIUM OXIDE. [Concomitant]
     Active Substance: MAGNESIUM OXIDE
     Indication: HEREDITARY NEUROPATHIC AMYLOIDOSIS
     Dosage: 4 DOSAGE FORM, QD
     Route: 048
  17. MEILAX [Concomitant]
     Active Substance: ETHYL LOFLAZEPATE
     Indication: SLEEP DISORDER
     Dosage: 1 MILLIGRAM, BID
     Route: 065
  18. NAUZELIN [Concomitant]
     Active Substance: DOMPERIDONE
     Indication: NAUSEA
     Dosage: 30 MILLIGRAM, PRN
     Route: 065
  19. ACETAMINOPHEN. [Concomitant]
     Active Substance: ACETAMINOPHEN
     Indication: PROPHYLAXIS
     Dosage: 500 MILLIGRAM, SINGLE
     Route: 065
     Dates: start: 20190913
  20. FAMOTIDINE. [Concomitant]
     Active Substance: FAMOTIDINE
     Indication: PROPHYLAXIS
     Dosage: 20 MILLIGRAM, SINGLE
     Route: 065
  21. PANVITAN [Concomitant]
     Active Substance: VITAMINS
     Indication: PROPHYLAXIS
     Dosage: 1 GRAM, SINGLE
     Route: 048
  22. DOPS [Concomitant]
     Active Substance: DROXIDOPA
     Indication: HYPOTENSION
     Dosage: 200 MILLIGRAM, SINGLE
     Route: 065
  23. PRIMPERAN [Concomitant]
     Active Substance: METOCLOPRAMIDE HYDROCHLORIDE
     Indication: VOMITING
  24. DEXART [Concomitant]
     Active Substance: DEXAMETHASONE SODIUM PHOSPHATE
     Indication: PROPHYLAXIS
     Dosage: 10 MILLIGRAM, SINGLE
     Route: 065
     Dates: start: 20190913
  25. ONPATTRO [Suspect]
     Active Substance: PATISIRAN SODIUM
     Dosage: 15.0 UNK
     Route: 041
     Dates: start: 20201014, end: 20210312
  26. DEXART [Concomitant]
     Active Substance: DEXAMETHASONE SODIUM PHOSPHATE
     Dosage: 9.9 MILLIGRAM, SINGLE
  27. AMITIZA [Concomitant]
     Active Substance: LUBIPROSTONE
     Indication: HEREDITARY NEUROPATHIC AMYLOIDOSIS
     Dosage: 1 DOSAGE FORM, BID
     Route: 048
  28. ZOLPIDEM TARTRATE. [Concomitant]
     Active Substance: ZOLPIDEM TARTRATE
     Indication: INSOMNIA
     Dosage: 1 DOSAGE FORM, QD
     Route: 048
  29. BELSOMRA [Concomitant]
     Active Substance: SUVOREXANT
     Indication: INSOMNIA
     Dosage: 1 DOSAGE FORM, SINGLE
     Route: 048
  30. METHYCOBAL [Concomitant]
     Active Substance: METHYLCOBALAMIN
     Indication: PROPHYLAXIS
     Dosage: 500 MICROGRAM, TID
     Route: 065
  31. GOOFICE [Concomitant]
     Active Substance: ELOBIXIBAT
     Indication: ABDOMINAL PAIN
     Dosage: 5 MILLIGRAM, BID
     Route: 065
  32. GASCON [Concomitant]
     Active Substance: DIMETHICONE
     Indication: ABDOMINAL PAIN
     Dosage: 40 MILLIGRAM, TID
     Route: 065

REACTIONS (4)
  - No adverse event [Unknown]
  - Inappropriate schedule of product administration [Unknown]
  - Vomiting [Recovering/Resolving]
  - Nausea [Unknown]

NARRATIVE: CASE EVENT DATE: 20191024
